APPROVED DRUG PRODUCT: MINOXIDIL EXTRA STRENGTH (FOR MEN)
Active Ingredient: MINOXIDIL
Strength: 5%
Dosage Form/Route: SOLUTION;TOPICAL
Application: A217998 | Product #001
Applicant: TARO PHARMACEUTICAL INDUSTRIES LTD
Approved: Jun 30, 2025 | RLD: No | RS: No | Type: OTC